FAERS Safety Report 8767477 (Version 1)
Quarter: 2012Q4

REPORT INFORMATION
  Report Type: 
  Country: FR (occurrence: FR)
  Receive Date: 20120904
  Receipt Date: 20120904
  Transmission Date: 20130627
  Serious: Yes (Hospitalization, Other)
  Sender: FDA-Public Use
  Company Number: FR-INCYTE CORPORATION-2012IN001644

PATIENT
  Age: 60 Year
  Sex: Male
  Weight: 87 kg

DRUGS (9)
  1. INC424 [Suspect]
     Dosage: 10 mg, bid
     Route: 065
     Dates: start: 20120115
  2. EXJADE [Concomitant]
  3. PRAVADUAL [Concomitant]
  4. PARIET [Concomitant]
  5. LEVOTHYROX [Concomitant]
  6. INSULIN HUMAN [Concomitant]
  7. LEVEMIR [Concomitant]
  8. PRAXILENE [Concomitant]
  9. HUMALOG [Concomitant]

REACTIONS (2)
  - Arterial disorder [Unknown]
  - Thrombocytopenia [Not Recovered/Not Resolved]
